FAERS Safety Report 6243115-8 (Version None)
Quarter: 2009Q2

REPORT INFORMATION
  Report Type: 
  Country: None (occurrence: None)
  Receive Date: 20090622
  Receipt Date: 20090617
  Transmission Date: 20091009
  Serious: Yes (Hospitalization, Disabling, Other)
  Sender: FDA-Public Use
  Company Number: 09GB001850

PATIENT
  Age: 7 Year
  Sex: Female

DRUGS (6)
  1. IBUPROFEN [Suspect]
     Indication: COUGH
     Dosage: 100 MG, SINGLE DOSE, ORAL
     Route: 048
  2. IBUPROFEN [Suspect]
     Indication: PYREXIA
     Dosage: 100 MG, SINGLE DOSE, ORAL
     Route: 048
  3. FLOXACILLIN SODIUM [Suspect]
     Indication: COUGH
  4. FLOXACILLIN SODIUM [Suspect]
     Indication: LOWER RESPIRATORY TRACT INFECTION
  5. FLOXACILLIN SODIUM [Suspect]
     Indication: PYREXIA
  6. ANTIBIOTICS [Concomitant]

REACTIONS (9)
  - DEHYDRATION [None]
  - HAEMODIALYSIS [None]
  - MALAISE [None]
  - RENAL CORTICAL NECROSIS [None]
  - RENAL FAILURE ACUTE [None]
  - RENAL FAILURE CHRONIC [None]
  - RENAL ISCHAEMIA [None]
  - RENAL TUBULAR NECROSIS [None]
  - VOMITING [None]
